FAERS Safety Report 15481507 (Version 2)
Quarter: 2018Q4

REPORT INFORMATION
  Report Type: Spontaneous
  Country: US (occurrence: US)
  Receive Date: 20181010
  Receipt Date: 20181119
  Transmission Date: 20190205
  Serious: No
  Sender: FDA-Public Use
  Company Number: US-BAUSCH-BL-2018-026302

PATIENT
  Sex: Female

DRUGS (1)
  1. TOBRAMYCIN AND DEXAMETHASONE [Suspect]
     Active Substance: DEXAMETHASONE\TOBRAMYCIN
     Indication: EYE INFECTION
     Route: 047
     Dates: start: 20180920

REACTIONS (2)
  - Discomfort [Not Recovered/Not Resolved]
  - Drug ineffective [Not Recovered/Not Resolved]

NARRATIVE: CASE EVENT DATE: 201809
